FAERS Safety Report 5447370-3 (Version None)
Quarter: 2007Q3

REPORT INFORMATION
  Report Type: 
  Country: None (occurrence: None)
  Receive Date: 20070910
  Receipt Date: 20070830
  Transmission Date: 20080115
  Serious: Yes (Hospitalization)
  Sender: FDA-Public Use
  Company Number: CL-AMGEN-US241193

PATIENT
  Sex: Female

DRUGS (9)
  1. PANITUMUMAB [Suspect]
     Indication: COLORECTAL CANCER
     Route: 042
     Dates: start: 20070523
  2. FOLINIC ACID [Concomitant]
     Route: 042
  3. FLUOROURACIL INJ [Concomitant]
     Route: 065
  4. OXALIPLATIN [Concomitant]
     Route: 042
  5. DOMPERIDONE [Concomitant]
     Route: 042
  6. ONDANSETRON [Concomitant]
     Route: 042
  7. DEXAMETHASONE 0.5MG TAB [Concomitant]
     Route: 042
  8. OMEPRAZOLE [Concomitant]
     Route: 065
  9. CLONAZEPAM [Concomitant]
     Route: 065

REACTIONS (1)
  - GASTRIC HAEMORRHAGE [None]
